FAERS Safety Report 16163699 (Version 1)
Quarter: 2019Q2

REPORT INFORMATION
  Report Type: Spontaneous
  Country: US (occurrence: US)
  Receive Date: 20190304
  Receipt Date: 20190304
  Transmission Date: 20190711
  Serious: No
  Sender: FDA-Public Use
  Company Number: None

PATIENT
  Age: 77 Year
  Sex: Female

DRUGS (1)
  1. OTEZLA [Suspect]
     Active Substance: APREMILAST
     Indication: PSORIASIS
     Dosage: ?          OTHER DOSE:ITAKE 1 TABLET BY M(;?
     Route: 048
     Dates: start: 201810

REACTIONS (3)
  - Nausea [None]
  - Muscle spasms [None]
  - Diarrhoea [None]
